FAERS Safety Report 25814881 (Version 1)
Quarter: 2025Q3

REPORT INFORMATION
  Report Type: Spontaneous
  Country: CN (occurrence: CN)
  Receive Date: 20250918
  Receipt Date: 20250918
  Transmission Date: 20251021
  Serious: Yes (Hospitalization)
  Sender: BEIGENE
  Company Number: CN-BEIGENE-BGN-2025-015614

PATIENT
  Age: 67 Year
  Weight: 93 kg

DRUGS (21)
  1. TISLELIZUMAB [Suspect]
     Active Substance: TISLELIZUMAB
     Indication: Ureteric cancer
  2. TISLELIZUMAB [Suspect]
     Active Substance: TISLELIZUMAB
  3. TISLELIZUMAB [Suspect]
     Active Substance: TISLELIZUMAB
     Route: 041
  4. TISLELIZUMAB [Suspect]
     Active Substance: TISLELIZUMAB
  5. TISLELIZUMAB [Suspect]
     Active Substance: TISLELIZUMAB
     Route: 041
  6. TISLELIZUMAB [Suspect]
     Active Substance: TISLELIZUMAB
  7. CARBOPLATIN [Suspect]
     Active Substance: CARBOPLATIN
     Indication: Ureteric cancer
  8. CARBOPLATIN [Suspect]
     Active Substance: CARBOPLATIN
     Route: 041
  9. CARBOPLATIN [Suspect]
     Active Substance: CARBOPLATIN
  10. PACLITAXEL [Suspect]
     Active Substance: PACLITAXEL
     Indication: Ureteric cancer
  11. PACLITAXEL [Suspect]
     Active Substance: PACLITAXEL
     Route: 041
  12. PACLITAXEL [Suspect]
     Active Substance: PACLITAXEL
  13. OPRELVEKIN [Suspect]
     Active Substance: OPRELVEKIN
     Indication: Myelosuppression
     Dosage: 3 MILLIGRAM, QD
  14. DESLORATADINE [Concomitant]
     Active Substance: DESLORATADINE
     Indication: Prophylaxis
     Route: 048
  15. DESLORATADINE [Concomitant]
     Active Substance: DESLORATADINE
  16. SODIUM CHLORIDE [Concomitant]
     Active Substance: SODIUM CHLORIDE
     Indication: Vehicle solution use
  17. SODIUM CHLORIDE [Concomitant]
     Active Substance: SODIUM CHLORIDE
     Route: 041
  18. SODIUM CHLORIDE [Concomitant]
     Active Substance: SODIUM CHLORIDE
  19. SODIUM CHLORIDE [Concomitant]
     Active Substance: SODIUM CHLORIDE
     Route: 041
  20. DEXTROSE [Concomitant]
     Active Substance: DEXTROSE MONOHYDRATE
     Indication: Vehicle solution use
     Route: 041
  21. DEXTROSE [Concomitant]
     Active Substance: DEXTROSE MONOHYDRATE

REACTIONS (3)
  - Myelosuppression [Not Recovered/Not Resolved]
  - Oedema peripheral [Recovering/Resolving]
  - Rash [Unknown]
